FAERS Safety Report 21272228 (Version 1)
Quarter: 2022Q3

REPORT INFORMATION
  Report Type: Spontaneous
  Country: US (occurrence: US)
  Receive Date: 20220830
  Receipt Date: 20220830
  Transmission Date: 20221027
  Serious: No
  Sender: FDA-Public Use
  Company Number: US-BRAINTREE LABORATORIES, INC.-2022BTE00490

PATIENT
  Age: 66 Year
  Sex: Female

DRUGS (9)
  1. SUTAB [Suspect]
     Active Substance: MAGNESIUM SULFATE\POTASSIUM CHLORIDE\SODIUM SULFATE
     Indication: Colonoscopy
     Dosage: 1 X 12 TABLETS, 1X
     Route: 048
     Dates: start: 20220608
  2. LISINOPRIL [Concomitant]
     Active Substance: LISINOPRIL
     Dosage: AT NIGHT
  3. CYMBALTA [Concomitant]
     Active Substance: DULOXETINE HYDROCHLORIDE
     Dosage: AT NIGHT
  4. PROMETHAZINE [Concomitant]
     Active Substance: PROMETHAZINE HYDROCHLORIDE
     Dosage: AT NIGHT
  5. MAGNESIUM [Concomitant]
     Active Substance: MAGNESIUM
     Dosage: AT NIGHT
  6. OVER THE COUNTER PROBIOTIC [Concomitant]
     Dosage: AT NIGHT
  7. PEPCID AC [Concomitant]
     Active Substance: FAMOTIDINE
     Dosage: AT NIGHT
  8. VITAMIN D [Concomitant]
     Active Substance: VITAMIN D NOS
     Dosage: AT NIGHT
  9. CALCIUM [Concomitant]
     Active Substance: CALCIUM
     Dosage: AT NIGHT

REACTIONS (2)
  - Vomiting [Not Recovered/Not Resolved]
  - Nausea [Not Recovered/Not Resolved]

NARRATIVE: CASE EVENT DATE: 20220608
